FAERS Safety Report 4378724-4 (Version None)
Quarter: 2004Q2

REPORT INFORMATION
  Report Type: 
  Country: None (occurrence: None)
  Receive Date: 20040616
  Receipt Date: 20040607
  Transmission Date: 20050107
  Serious: Yes (Other)
  Sender: FDA-Public Use
  Company Number: PHBS2004JP07692

PATIENT
  Age: 77 Year
  Sex: Male
  Weight: 54 kg

DRUGS (11)
  1. LOPRESSOR [Suspect]
     Indication: HYPERTENSION
     Dosage: 40 MG/DAY
     Route: 048
     Dates: start: 20040123, end: 20040126
  2. BAYASPIRIN [Concomitant]
     Route: 048
  3. PANALDINE [Concomitant]
     Route: 048
  4. SINLESTAL [Concomitant]
     Route: 048
  5. KALIMATE [Concomitant]
     Route: 048
  6. CALCIUM CARBONATE [Concomitant]
     Route: 048
  7. SIMVASTATIN [Concomitant]
     Route: 048
  8. PANALDINE [Concomitant]
     Route: 048
  9. GASTROM [Concomitant]
     Route: 048
  10. NORVASC [Concomitant]
     Route: 048
  11. EUTENSIN [Concomitant]
     Route: 048

REACTIONS (5)
  - ASTHMA [None]
  - DYSPNOEA [None]
  - OXYGEN SATURATION DECREASED [None]
  - STRIDOR [None]
  - WHEEZING [None]
